FAERS Safety Report 17041526 (Version 1)
Quarter: 2019Q4

REPORT INFORMATION
  Report Type: Spontaneous
  Country: US (occurrence: US)
  Receive Date: 20191118
  Receipt Date: 20191118
  Transmission Date: 20200122
  Serious: No
  Sender: FDA-Public Use
  Company Number: US-GILEAD-2019-0437759

PATIENT
  Sex: Male

DRUGS (6)
  1. TEMOVATE [Concomitant]
     Active Substance: CLOBETASOL PROPIONATE
  2. NAPROXEN. [Concomitant]
     Active Substance: NAPROXEN
  3. OXYCODONE HYDROCHLORIDE. [Concomitant]
     Active Substance: OXYCODONE HYDROCHLORIDE
  4. NARCAN [Concomitant]
     Active Substance: NALOXONE HYDROCHLORIDE
  5. SOFOSBUVIR;VELPATASVIR [Suspect]
     Active Substance: SOFOSBUVIR\VELPATASVIR
     Indication: CHRONIC HEPATITIS C
     Dosage: 1 DOSAGE FORM, QD
     Route: 048
     Dates: start: 201910
  6. ASPIRIN ACTAVIS [Concomitant]

REACTIONS (1)
  - Malaise [Recovered/Resolved]
